FAERS Safety Report 6751646-7 (Version None)
Quarter: 2010Q2

REPORT INFORMATION
  Report Type: 
  Country: None (occurrence: None)
  Receive Date: 20100602
  Receipt Date: 20100525
  Transmission Date: 20101027
  Serious: Yes (Death, Life-Threatening, Hospitalization, Disabling, Other)
  Sender: FDA-Public Use
  Company Number: A0856171A

PATIENT
  Age: 4 Week
  Sex: Female
  Weight: 3 kg

DRUGS (13)
  1. FLOLAN [Suspect]
     Indication: PULMONARY HYPERTENSION
     Route: 042
     Dates: start: 20100407, end: 20100421
  2. NITRIC OXIDE [Concomitant]
     Indication: PULMONARY HYPERTENSION
     Route: 055
     Dates: start: 20100326, end: 20100421
  3. SILDENAFIL [Concomitant]
     Indication: PULMONARY HYPERTENSION
     Dosage: 5.4MG SIX TIMES PER DAY
     Route: 048
     Dates: start: 20100403, end: 20100407
  4. AMPHOTERICIN B [Concomitant]
     Dosage: 4.2MG PER DAY
     Route: 042
     Dates: start: 20100411, end: 20100420
  5. MILRINONE [Concomitant]
     Indication: PULMONARY HYPERTENSION
     Route: 042
     Dates: start: 20100406, end: 20100421
  6. DOPAMINE HCL [Concomitant]
     Indication: HYPOTENSION
     Route: 042
     Dates: start: 20100409, end: 20100421
  7. FLUCONAZOLE [Concomitant]
     Dosage: 42MG PER DAY
     Route: 042
     Dates: start: 20100420, end: 20100421
  8. VANCOMYCIN [Concomitant]
     Route: 042
     Dates: start: 20100408, end: 20100421
  9. ZANTAC [Concomitant]
     Dosage: 5MG EIGHT TIMES PER DAY
     Route: 042
     Dates: start: 20090421, end: 20100421
  10. ZOSYN [Concomitant]
     Dosage: 315MG EIGHT TIMES PER DAY
     Route: 042
     Dates: start: 20100404, end: 20100421
  11. PANCURONIUM BROMIDE [Concomitant]
     Indication: SEDATION
     Route: 042
     Dates: start: 20100413, end: 20100421
  12. MIDAZOLAM HCL [Concomitant]
     Indication: SEDATION
     Route: 042
     Dates: start: 20100413, end: 20100421
  13. FENTANYL [Concomitant]
     Indication: SEDATION
     Route: 042
     Dates: start: 20100407, end: 20100421

REACTIONS (4)
  - GASTROINTESTINAL HAEMORRHAGE [None]
  - HAEMORRHAGE [None]
  - HYPOTENSION [None]
  - THROMBOCYTOPENIA [None]
